FAERS Safety Report 10243428 (Version 3)
Quarter: 2014Q4

REPORT INFORMATION
  Report Type: Spontaneous
  Country: IT (occurrence: IT)
  Receive Date: 20140618
  Receipt Date: 20141111
  Transmission Date: 20150528
  Serious: Yes (Other)
  Sender: FDA-Public Use
  Company Number: IT-AMGEN-ITASP2014044563

PATIENT
  Age: 79 Year
  Sex: Female

DRUGS (2)
  1. ZESTRIL [Concomitant]
     Active Substance: LISINOPRIL
     Indication: HYPERTENSION
     Dosage: 1 UNIT, UNK
     Route: 048
  2. PROLIA [Suspect]
     Active Substance: DENOSUMAB
     Indication: OSTEOPOROSIS
     Dosage: 1 DF (POSOLOGICAL UNIT), CYCLICAL
     Route: 058
     Dates: start: 20140423, end: 20140423

REACTIONS (4)
  - Anorectal cellulitis [Recovered/Resolved]
  - Pelvic fracture [Recovered/Resolved]
  - Strangury [Recovered/Resolved]
  - Fractured sacrum [Recovered/Resolved]

NARRATIVE: CASE EVENT DATE: 20140505
